FAERS Safety Report 6201223-1 (Version None)
Quarter: 2009Q2

REPORT INFORMATION
  Report Type: 
  Country: None (occurrence: None)
  Receive Date: 20090526
  Receipt Date: 20090518
  Transmission Date: 20091009
  Serious: Yes (Hospitalization)
  Sender: FDA-Public Use
  Company Number: DE-JNJFOC-20090306954

PATIENT
  Sex: Female

DRUGS (4)
  1. RISPERDAL [Suspect]
     Indication: SCHIZOPHRENIA
     Route: 048
  2. ZYPREXA [Concomitant]
     Indication: SCHIZOPHRENIA
     Route: 048
  3. BELOC ZOK [Concomitant]
     Route: 048
  4. PANTOZOL [Concomitant]
     Route: 048

REACTIONS (2)
  - HYPOKALAEMIA [None]
  - RENAL INJURY [None]
